FAERS Safety Report 6216896-7 (Version None)
Quarter: 2009Q2

REPORT INFORMATION
  Report Type: 
  Country: None (occurrence: None)
  Receive Date: 20090605
  Receipt Date: 20090526
  Transmission Date: 20091009
  Serious: Yes (Other)
  Sender: FDA-Public Use
  Company Number: US-SANOFI-SYNTHELABO-A03200902310

PATIENT

DRUGS (3)
  1. MEPERIDINE HCL [Suspect]
     Indication: SEDATION
     Dosage: UNK
     Route: 065
  2. MIDAZOLAM HCL [Suspect]
     Indication: SEDATIVE THERAPY
     Dosage: UNK
     Route: 065
  3. MIDAZOLAM HCL [Suspect]
     Indication: ANXIOLYTIC THERAPY
     Dosage: UNK
     Route: 065

REACTIONS (2)
  - HYPOTENSION [None]
  - HYPOXIA [None]
